FAERS Safety Report 8941284 (Version 1)
Quarter: 2012Q4

REPORT INFORMATION
  Report Type: 
  Country: US (occurrence: US)
  Receive Date: 20121203
  Receipt Date: 20121203
  Transmission Date: 20130627
  Serious: No
  Sender: FDA-Public Use
  Company Number: US-BAYER-2012-125089

PATIENT
  Sex: Male

DRUGS (4)
  1. STAXYN (FDT/ODT) [Suspect]
     Indication: ERECTILE DYSFUNCTION
     Dosage: 10 mg, UNK
     Route: 048
     Dates: start: 201204, end: 20121015
  2. STAXYN (FDT/ODT) [Suspect]
     Indication: ERECTILE DYSFUNCTION
  3. JALYN [Concomitant]
  4. VYTORIN [Concomitant]

REACTIONS (1)
  - Drug ineffective [Unknown]
